FAERS Safety Report 8607360-6 (Version None)
Quarter: 2012Q3

REPORT INFORMATION
  Report Type: 
  Country: None (occurrence: None)
  Receive Date: 20120821
  Receipt Date: 20120817
  Transmission Date: 20120928
  Serious: No
  Sender: FDA-Public Use
  Company Number: US-PFIZER INC-2012202564

PATIENT
  Sex: Female

DRUGS (2)
  1. PRISTIQ [Suspect]
     Indication: ANGIOPATHY
     Dosage: 100 MG, DAILY
  2. PRISTIQ [Suspect]
     Dosage: 50 MG, DAILY

REACTIONS (1)
  - WITHDRAWAL SYNDROME [None]
